FAERS Safety Report 8274367-0 (Version None)
Quarter: 2012Q2

REPORT INFORMATION
  Report Type: 
  Country: None (occurrence: None)
  Receive Date: 20120411
  Receipt Date: 20120404
  Transmission Date: 20120825
  Serious: Yes (Other)
  Sender: FDA-Public Use
  Company Number: CA-BAYER-2012-031208

PATIENT
  Age: 13 Month

DRUGS (7)
  1. KOGENATE FS [Suspect]
     Dosage: UNK
     Dates: start: 20111229, end: 20120306
  2. KOGENATE FS [Suspect]
     Dosage: UNK
     Dates: start: 20110303
  3. KOGENATE FS [Suspect]
     Indication: HAEMOPHILIA
     Dosage: UNK
     Dates: start: 20120309, end: 20120314
  4. KOGENATE FS [Suspect]
     Dosage: UNK
     Dates: start: 20120309, end: 20120314
  5. KOGENATE FS [Suspect]
     Dosage: UNK
     Dates: start: 20111019
  6. KOGENATE FS [Suspect]
     Dosage: UNK
     Dates: start: 20011119, end: 20111227
  7. KOGENATE FS [Suspect]
     Dosage: UNK
     Dates: start: 20120313, end: 20120313

REACTIONS (2)
  - HAEMORRHAGE [None]
  - ANTI FACTOR VIII ANTIBODY POSITIVE [None]
